FAERS Safety Report 14064310 (Version 2)
Quarter: 2017Q4

REPORT INFORMATION
  Report Type: Spontaneous
  Country: US (occurrence: US)
  Receive Date: 20171009
  Receipt Date: 20171013
  Transmission Date: 20180321
  Serious: Yes (Other)
  Sender: FDA-Public Use
  Company Number: US-PFIZER INC-2017432242

PATIENT
  Age: 33 Year
  Sex: Male

DRUGS (1)
  1. TACROLIMUS. [Suspect]
     Active Substance: TACROLIMUS
     Indication: GRAFT VERSUS HOST DISEASE
     Dosage: 3 MG, DAILY

REACTIONS (3)
  - Autoimmune hepatitis [Unknown]
  - Epidermodysplasia verruciformis [Recovered/Resolved]
  - Graft versus host disease [Unknown]
